FAERS Safety Report 15007634 (Version 1)
Quarter: 2018Q2

REPORT INFORMATION
  Report Type: Spontaneous
  Country: MX (occurrence: MX)
  Receive Date: 20180613
  Receipt Date: 20180613
  Transmission Date: 20180711
  Serious: Yes (Hospitalization)
  Sender: FDA-Public Use
  Company Number: MX-PFIZER INC-2018235215

PATIENT

DRUGS (1)
  1. AZULFIDINA [Suspect]
     Active Substance: SULFASALAZINE
     Dosage: 2 MG, 3X/DAY

REACTIONS (2)
  - Laboratory test abnormal [Unknown]
  - Renal disorder [Unknown]
